FAERS Safety Report 20000896 (Version 1)
Quarter: 2021Q4

REPORT INFORMATION
  Report Type: Spontaneous
  Country: US (occurrence: US)
  Receive Date: 20211027
  Receipt Date: 20211027
  Transmission Date: 20220303
  Serious: No
  Sender: FDA-Public Use
  Company Number: None

PATIENT
  Age: 91 Year
  Sex: Male

DRUGS (1)
  1. BICALUTAMIDE [Suspect]
     Active Substance: BICALUTAMIDE
     Indication: Neoplasm malignant
     Dates: start: 20210506, end: 20210602

REACTIONS (5)
  - Dyspnoea [None]
  - Hot flush [None]
  - Chills [None]
  - Fatigue [None]
  - Respiratory depression [None]

NARRATIVE: CASE EVENT DATE: 20210529
